FAERS Safety Report 13424050 (Version 2)
Quarter: 2017Q2

REPORT INFORMATION
  Report Type: Report from Study
  Country: BR (occurrence: BR)
  Receive Date: 20170410
  Receipt Date: 20170530
  Transmission Date: 20170830
  Serious: Yes (Hospitalization, Other)
  Sender: FDA-Public Use
  Company Number: PHHY2017BR051608

PATIENT
  Age: 90 Year
  Sex: Male
  Weight: 61 kg

DRUGS (6)
  1. LACTULONA [Concomitant]
     Indication: PRODUCT USED FOR UNKNOWN INDICATION
     Dosage: UNK
     Route: 065
  2. GALVUS [Suspect]
     Active Substance: VILDAGLIPTIN
     Indication: TYPE 2 DIABETES MELLITUS
     Route: 065
  3. EXELON PATCH [Suspect]
     Active Substance: RIVASTIGMINE
     Indication: DEPRESSED MOOD
     Dosage: 4.6 MG, PATCH 5 (CM2), QD
     Route: 062
  4. DIAMICRON [Suspect]
     Active Substance: GLICLAZIDE
     Indication: TYPE 2 DIABETES MELLITUS
     Route: 065
  5. EXELON PATCH [Suspect]
     Active Substance: RIVASTIGMINE
     Indication: DEMENTIA
     Dosage: 4.6 MG, PATCH 5 (CM2), QD
     Route: 062
  6. EXELON PATCH [Suspect]
     Active Substance: RIVASTIGMINE
     Indication: COGNITIVE DISORDER
     Dosage: 9.5 MG, PATCH 10 (CM2), QD
     Route: 062

REACTIONS (15)
  - Hypotension [Recovered/Resolved]
  - Depressed mood [Unknown]
  - Drug interaction [Unknown]
  - Decreased appetite [Unknown]
  - Product use in unapproved indication [Unknown]
  - Drug ineffective [Unknown]
  - Malaise [Unknown]
  - Diabetes mellitus inadequate control [Unknown]
  - Syncope [Unknown]
  - Insomnia [Unknown]
  - Blood glucose fluctuation [Unknown]
  - Stubbornness [Unknown]
  - Middle insomnia [Unknown]
  - Drug intolerance [Unknown]
  - Laziness [Unknown]

NARRATIVE: CASE EVENT DATE: 20170304
